FAERS Safety Report 18582769 (Version 4)
Quarter: 2020Q4

REPORT INFORMATION
  Report Type: Spontaneous
  Country: AT (occurrence: AT)
  Receive Date: 20201205
  Receipt Date: 20201231
  Transmission Date: 20210114
  Serious: Yes (Hospitalization, Other)
  Sender: FDA-Public Use
  Company Number: NVSC2020AT317521

PATIENT
  Sex: Female
  Weight: 89 kg

DRUGS (24)
  1. DOCETAXEL. [Suspect]
     Active Substance: DOCETAXEL
     Dosage: 106.22 MG
     Route: 042
     Dates: start: 20181017
  2. TRASTUZUMAB. [Suspect]
     Active Substance: TRASTUZUMAB
     Dosage: 438 MG (MOST RECENT DOSE PRIOR TO THE EVENT: 14/JUL/2017, 08/JUN/2018, 23/JUL/2018, 08/JUN/2018)
     Route: 042
     Dates: start: 20180926
  3. FORTECORTIN [Concomitant]
     Active Substance: DEXAMETHASONE
     Dosage: UNK (ONGOING = NOT CHECKED)
     Route: 065
     Dates: start: 20181017
  4. FENISTIL [Concomitant]
     Active Substance: DIMETHINDENE
     Indication: PRODUCT USED FOR UNKNOWN INDICATION
     Dosage: ONGOING = CHECKED
     Route: 065
     Dates: start: 20170414
  5. XGEVA [Concomitant]
     Active Substance: DENOSUMAB
     Dosage: UNK
     Route: 065
     Dates: start: 20181017
  6. TRASTUZUMAB. [Suspect]
     Active Substance: TRASTUZUMAB
     Indication: BREAST CANCER METASTATIC
     Dosage: 712 MG, TIW (MOST RECENT DOSE PRIOR TO THE EVENT: 14/JUL/2017, 08/JUN/2018, 23/JUL/2018, 08/JUN/2018
     Route: 042
     Dates: start: 20170324, end: 20170324
  7. CORTISON [Concomitant]
     Active Substance: CORTISONE ACETATE
     Indication: PRODUCT USED FOR UNKNOWN INDICATION
     Dosage: ONGOING = NOT CHECKED
     Route: 065
     Dates: start: 20180608, end: 20180608
  8. PERTUZUMAB. [Suspect]
     Active Substance: PERTUZUMAB
     Indication: BREAST CANCER METASTATIC
     Dosage: 840 MG, TIW (MOST RECENT DOSE PRIOR TO THE EVENT: 14/JUL/2017, 13/DEC/2017, 23/JUL/2018)
     Route: 042
     Dates: start: 20170324, end: 20170324
  9. TRITAZIDE [Concomitant]
     Active Substance: HYDROCHLOROTHIAZIDE\RAMIPRIL
     Indication: PRODUCT USED FOR UNKNOWN INDICATION
     Dosage: UNK
     Route: 065
  10. DOCETAXEL. [Suspect]
     Active Substance: DOCETAXEL
     Indication: BREAST CANCER METASTATIC
     Dosage: 137 MG, TIW (DATE OF MOST RECENT DOSE: 23/JUL/2018)
     Route: 042
     Dates: start: 20180608, end: 20180608
  11. ANASTROZOLE. [Suspect]
     Active Substance: ANASTROZOLE
     Indication: BREAST CANCER METASTATIC
     Dosage: 1 MG,QD (MOST RECENT DOSE PRIOR TO AE 14/MAY/2018)
     Route: 048
     Dates: start: 20170324
  12. FULVESTRANT. [Suspect]
     Active Substance: FULVESTRANT
     Indication: BREAST CANCER METASTATIC
     Dosage: 500 MG, BIW (MOST RECENT DOSE PRIOR TO THE EVENT: 26/DEC/2018)
     Route: 030
     Dates: start: 20181128
  13. TRASTUZUMAB. [Suspect]
     Active Substance: TRASTUZUMAB
     Dosage: 438 MG, TIW
     Route: 041
     Dates: start: 20181017, end: 20181017
  14. KYTRIL [Concomitant]
     Active Substance: GRANISETRON HYDROCHLORIDE
     Indication: PRODUCT USED FOR UNKNOWN INDICATION
     Dosage: UNK
     Route: 065
     Dates: start: 20180608, end: 20181017
  15. URBASON [Concomitant]
     Active Substance: METHYLPREDNISOLONE
     Indication: PRODUCT USED FOR UNKNOWN INDICATION
     Dosage: UNK
     Route: 065
     Dates: start: 20191210
  16. FORTECORTIN [Concomitant]
     Active Substance: DEXAMETHASONE
     Indication: PRODUCT USED FOR UNKNOWN INDICATION
     Dosage: UNK (ONGOING = NOT CHECKED)
     Route: 065
     Dates: start: 20180723, end: 20181017
  17. ULSAL [Concomitant]
     Active Substance: RANITIDINE HYDROCHLORIDE
     Indication: PRODUCT USED FOR UNKNOWN INDICATION
     Dosage: UNK
     Route: 065
     Dates: start: 20170414, end: 20191119
  18. CAL D VITA [Concomitant]
     Indication: PRODUCT USED FOR UNKNOWN INDICATION
     Dosage: UNK
     Route: 065
     Dates: start: 20170505, end: 20190615
  19. TRASTUZUMAB. [Suspect]
     Active Substance: TRASTUZUMAB
     Dosage: 420 MG, TIW
     Route: 041
     Dates: start: 20181128, end: 20181128
  20. TRASTUZUMAB. [Suspect]
     Active Substance: TRASTUZUMAB
     Dosage: 408 MG, TIW (ON 24/APR/2020, MOST RECENT DOSE)
     Route: 041
     Dates: start: 20181219
  21. PERTUZUMAB. [Suspect]
     Active Substance: PERTUZUMAB
     Dosage: 420 MG (MOST RECENT DOSE PRIOR TO THE EVENT: 14/JUL/2017, 13/DEC/2017, 23/JUL/2018)
     Route: 042
     Dates: start: 20180723
  22. XGEVA [Concomitant]
     Active Substance: DENOSUMAB
     Indication: PRODUCT USED FOR UNKNOWN INDICATION
     Dosage: UNK
     Route: 065
     Dates: start: 20170505, end: 20180329
  23. PANTOPRAZOLE [Concomitant]
     Active Substance: PANTOPRAZOLE
     Indication: PRODUCT USED FOR UNKNOWN INDICATION
     Dosage: UNK
     Route: 065
  24. DEXABENE [Concomitant]
     Indication: PRODUCT USED FOR UNKNOWN INDICATION
     Dosage: UNK
     Route: 065
     Dates: start: 20181107

REACTIONS (15)
  - Dyspnoea exertional [Recovered/Resolved]
  - Ejection fraction decreased [Not Recovered/Not Resolved]
  - Paraesthesia [Recovered/Resolved]
  - Renal pain [Recovered/Resolved]
  - Hypertension [Recovered/Resolved]
  - Ejection fraction decreased [Recovering/Resolving]
  - Diarrhoea [Recovered/Resolved]
  - Flank pain [Recovered/Resolved]
  - Dyspnoea [Recovered/Resolved]
  - Dyspnoea [Not Recovered/Not Resolved]
  - Dysgeusia [Recovered/Resolved]
  - Polyneuropathy [Unknown]
  - Fatigue [Recovered/Resolved]
  - Sinusitis [Recovered/Resolved]
  - Pyrexia [Not Recovered/Not Resolved]

NARRATIVE: CASE EVENT DATE: 20171030
